FAERS Safety Report 7635948-8 (Version None)
Quarter: 2011Q3

REPORT INFORMATION
  Report Type: 
  Country: None (occurrence: None)
  Receive Date: 20110726
  Receipt Date: 20110714
  Transmission Date: 20111222
  Serious: Yes (Other)
  Sender: FDA-Public Use
  Company Number: US-ROCHE-512843

PATIENT
  Sex: Female
  Weight: 65.8 kg

DRUGS (18)
  1. ACCUTANE [Suspect]
     Dosage: REPORTED AS 40MG BID ALTERNATING WITH 40 MG OD
     Route: 048
     Dates: start: 20030609, end: 20031019
  2. ORTHO TRI-CYCLEN [Concomitant]
  3. SULFAMETHOXAZOLE AND TRIMETHOPRIM [Concomitant]
     Indication: ACNE
     Dates: start: 20021018
  4. DOXYCYCLINE [Concomitant]
     Indication: ACNE
     Dates: start: 20020426
  5. CLINDAMYCIN TOPICAL GEL [Concomitant]
     Indication: ACNE
     Dates: start: 20020426
  6. ERYTHROMYCIN [Concomitant]
  7. MINOCYCLINE HCL [Concomitant]
     Indication: ACNE
     Dates: start: 20020222
  8. METROCREAM [Concomitant]
     Indication: ACNE
     Dates: start: 20020222
  9. ACCUTANE [Suspect]
     Dosage: REPORTED AS 40MG OD
     Route: 048
     Dates: start: 20030509
  10. CLINDAMYCIN LOTION [Concomitant]
     Dates: start: 20020702
  11. SULFAMETHOXAZOLE AND TRIMETHOPRIM [Concomitant]
     Dates: start: 20021107
  12. SULFAMETHOXAZOLE AND TRIMETHOPRIM [Concomitant]
     Dates: start: 20030425
  13. PLEXION [Concomitant]
     Indication: ACNE
     Dates: start: 20021018
  14. CLEOCIN T [Concomitant]
     Dates: start: 20030425
  15. PREVACID [Concomitant]
     Dates: start: 20020426
  16. RETIN-A [Concomitant]
  17. CLEOCIN T [Concomitant]
     Indication: ACNE
     Dates: start: 20021018
  18. NEUTROGENA [Concomitant]
     Dates: start: 20030425

REACTIONS (20)
  - IRRITABLE BOWEL SYNDROME [None]
  - GASTROINTESTINAL DISORDER [None]
  - ADENOMA BENIGN [None]
  - OVARIAN CYST [None]
  - ADNEXA UTERI MASS [None]
  - CROHN'S DISEASE [None]
  - PROCTITIS [None]
  - COLITIS ULCERATIVE [None]
  - MOUTH CYST [None]
  - HEPATIC CYST [None]
  - DEPRESSION [None]
  - MYALGIA [None]
  - PAIN [None]
  - INFLAMMATORY BOWEL DISEASE [None]
  - MYOSITIS [None]
  - ROAD TRAFFIC ACCIDENT [None]
  - DRY SKIN [None]
  - SCOLIOSIS [None]
  - COLITIS [None]
  - BACK PAIN [None]
